FAERS Safety Report 12429985 (Version 1)
Quarter: 2016Q2

REPORT INFORMATION
  Report Type: Spontaneous
  Country: US (occurrence: US)
  Receive Date: 20160602
  Receipt Date: 20160602
  Transmission Date: 20160815
  Serious: No
  Sender: FDA-Public Use
  Company Number: US-KADMON PHARMACEUTICALS, LLC-KAD201508-002650

PATIENT
  Age: 68 Year
  Sex: Female
  Weight: 67.13 kg

DRUGS (8)
  1. RIBAVIRIN 200 MG CAPSULES [Suspect]
     Active Substance: RIBAVIRIN
     Indication: HEPATIC CIRRHOSIS
  2. LACTULOSE. [Concomitant]
     Active Substance: LACTULOSE
  3. VIEKIRA PAK [Suspect]
     Active Substance: DASABUVIR\OMBITASVIR\PARITAPREVIR\RITONAVIR
     Indication: HEPATITIS C
     Dosage: 3 TABLETS IN AM AND 1 TABLET IN PM
     Route: 048
     Dates: start: 20150721, end: 20150803
  4. SPIRONOLACTONE. [Concomitant]
     Active Substance: SPIRONOLACTONE
  5. VIEKIRA PAK [Suspect]
     Active Substance: DASABUVIR\OMBITASVIR\PARITAPREVIR\RITONAVIR
     Indication: HEPATIC CIRRHOSIS
  6. POTASSIUM [Concomitant]
     Active Substance: POTASSIUM
  7. PROPRANOLOL [Concomitant]
     Active Substance: PROPRANOLOL\PROPRANOLOL HYDROCHLORIDE
  8. RIBAVIRIN 200 MG CAPSULES [Suspect]
     Active Substance: RIBAVIRIN
     Indication: HEPATITIS C
     Route: 048
     Dates: start: 20150721, end: 20150803

REACTIONS (3)
  - Blood bilirubin increased [Unknown]
  - Blood bilirubin unconjugated increased [Unknown]
  - Bilirubin conjugated increased [Unknown]

NARRATIVE: CASE EVENT DATE: 20150728
